FAERS Safety Report 5361068-1 (Version None)
Quarter: 2007Q2

REPORT INFORMATION
  Report Type: 
  Country: None (occurrence: None)
  Receive Date: 20070612
  Receipt Date: 20070607
  Transmission Date: 20071010
  Serious: Yes (Death)
  Sender: FDA-Public Use
  Company Number: B0474296A

PATIENT
  Sex: 0

DRUGS (4)
  1. TOPOTECAN HYDROCHLORIDE (FORMULATION UNKNOWN) (TOPOTECAN) (GENERIC) [Suspect]
     Indication: SMALL CELL LUNG CANCER STAGE UNSPECIFIED
     Dosage: 1 MG/M2 / SEE DOSAGE TEXT / INTRAVENOUS
     Route: 042
  2. PACLITAXEL [Suspect]
     Indication: SMALL CELL LUNG CANCER STAGE UNSPECIFIED
     Dosage: 175 MG/M2/ SEE DOSAGE TEXT / INTRAVENOUS
     Route: 042
  3. CARBOPLATIN [Suspect]
     Indication: SMALL CELL LUNG CANCER STAGE UNSPECIFIED
     Dosage: SEE DOSAGE TEXT / INTRAVENOUS
     Route: 042
  4. GRANULOCYTE COL.STIM.FACT INJECTION (GRANULOCYTE COL.STIM.FACT) [Suspect]
     Dosage: 5 MCG/KG/ PER DAY / SUBCUTANEOUS
     Route: 058

REACTIONS (2)
  - INFECTION [None]
  - NEUTROPENIA [None]
